FAERS Safety Report 10934833 (Version 3)
Quarter: 2015Q3

REPORT INFORMATION
  Report Type: Spontaneous
  Country: US (occurrence: US)
  Receive Date: 20150320
  Receipt Date: 20150904
  Transmission Date: 20151125
  Serious: No
  Sender: FDA-Public Use
  Company Number: US-ASTRAZENECA-2015SE24548

PATIENT
  Age: 26229 Day
  Sex: Female
  Weight: 73 kg

DRUGS (15)
  1. AROMASIN [Suspect]
     Active Substance: EXEMESTANE
     Indication: BREAST CANCER
     Route: 065
     Dates: start: 201005
  2. AROMASIN [Suspect]
     Active Substance: EXEMESTANE
     Indication: BREAST CANCER
     Route: 065
     Dates: start: 20150115
  3. TYLENOL [Concomitant]
     Active Substance: ACETAMINOPHEN
  4. ARIMIDEX [Suspect]
     Active Substance: ANASTROZOLE
     Indication: BREAST CANCER FEMALE
     Route: 048
  5. MEDICINE FOR ARTHRITIS [Concomitant]
     Indication: ARTHRITIS
  6. BLOOD PRESSURE PILL [Concomitant]
  7. FASLODEX [Suspect]
     Active Substance: FULVESTRANT
     Indication: BREAST CANCER
     Dosage: ONCE A MONTH FOR THE LAST
     Route: 030
  8. TAMOXIFEN CITRATE. [Suspect]
     Active Substance: TAMOXIFEN CITRATE
     Route: 048
     Dates: start: 1996
  9. AROMASIN [Suspect]
     Active Substance: EXEMESTANE
     Indication: MASS
     Route: 065
     Dates: start: 201005
  10. AROMASIN [Suspect]
     Active Substance: EXEMESTANE
     Indication: MASS
     Dosage: 25MG
     Route: 048
     Dates: start: 201505
  11. VITAMINS [Concomitant]
     Active Substance: VITAMINS
  12. AROMASIN [Suspect]
     Active Substance: EXEMESTANE
     Indication: BREAST CANCER
     Dosage: 25MG
     Route: 048
     Dates: start: 201505
  13. ARIMIDEX [Suspect]
     Active Substance: ANASTROZOLE
     Indication: BREAST CANCER FEMALE
     Dosage: GENERIC,1 MG DAILY.
     Route: 048
  14. FASLODEX [Suspect]
     Active Substance: FULVESTRANT
     Indication: BREAST CANCER
     Dosage: A SHOT IN EACH HIP EVERY 2 WEEKS FOR 6 WEEKS,
     Route: 030
     Dates: start: 201505
  15. AROMASIN [Suspect]
     Active Substance: EXEMESTANE
     Indication: MASS
     Route: 065
     Dates: start: 20150115

REACTIONS (17)
  - Activities of daily living impaired [Not Recovered/Not Resolved]
  - Bone disorder [Not Recovered/Not Resolved]
  - Product quality issue [Unknown]
  - Hypoaesthesia [Not Recovered/Not Resolved]
  - Dyspepsia [Recovered/Resolved]
  - Arthralgia [Not Recovered/Not Resolved]
  - Arthralgia [Recovered/Resolved]
  - Adverse event [Unknown]
  - Bone pain [Not Recovered/Not Resolved]
  - Myalgia [Not Recovered/Not Resolved]
  - Intentional product misuse [Unknown]
  - Nodule [Unknown]
  - Musculoskeletal discomfort [Not Recovered/Not Resolved]
  - Arthropathy [Unknown]
  - Influenza like illness [Not Recovered/Not Resolved]
  - Gait disturbance [Unknown]
  - Insomnia [Unknown]

NARRATIVE: CASE EVENT DATE: 20150129
